FAERS Safety Report 7587149-X (Version None)
Quarter: 2011Q3

REPORT INFORMATION
  Report Type: 
  Country: None (occurrence: None)
  Receive Date: 20110701
  Receipt Date: 20110627
  Transmission Date: 20111222
  Serious: Yes (Other)
  Sender: FDA-Public Use
  Company Number: US-ABBOTT-10P-163-0675003-00

PATIENT
  Sex: Female

DRUGS (4)
  1. VALTREX [Concomitant]
     Indication: GENITAL HERPES
  2. HUMIRA [Suspect]
     Indication: PSORIASIS
     Route: 058
     Dates: start: 20100101, end: 20100910
  3. MINOCYCLINE HCL [Concomitant]
     Indication: RASH
  4. SYNTHROID [Concomitant]
     Indication: HYPOTHYROIDISM

REACTIONS (1)
  - BLIGHTED OVUM [None]
